FAERS Safety Report 19919866 (Version 2)
Quarter: 2023Q1

REPORT INFORMATION
  Report Type: Spontaneous
  Country: ES (occurrence: ES)
  Receive Date: 20211005
  Receipt Date: 20230320
  Transmission Date: 20230418
  Serious: Yes (Death, Other)
  Sender: FDA-Public Use
  Company Number: ES-AMGEN-ESPSP2021151430

PATIENT

DRUGS (8)
  1. TRASTUZUMAB [Suspect]
     Active Substance: TRASTUZUMAB
     Indication: Adenocarcinoma gastric
     Dosage: UNK
     Route: 065
  2. CARBOPLATIN;FLUOROURACIL [Concomitant]
     Indication: Adenocarcinoma gastric
     Dosage: UNK
  3. CISPLATIN\FLUOROURACIL [Concomitant]
     Active Substance: CISPLATIN\FLUOROURACIL
     Indication: Adenocarcinoma gastric
     Dosage: UNK
  4. FLUOROURACIL;OXALIPLATIN [Concomitant]
     Indication: Adenocarcinoma gastric
     Dosage: UNK
  5. CAPECITABINE;OXALIPLATIN [Concomitant]
     Indication: Adenocarcinoma gastric
     Dosage: UNK
  6. Capecitabine;Cisplatin [Concomitant]
     Indication: Adenocarcinoma gastric
     Dosage: UNK
  7. FLUOROURACIL\LEUCOVORIN CALCIUM\OXALIPLATIN [Concomitant]
     Active Substance: FLUOROURACIL\LEUCOVORIN CALCIUM\OXALIPLATIN
     Indication: Adenocarcinoma gastric
     Dosage: UNK
  8. Capox [Concomitant]
     Indication: Adenocarcinoma gastric
     Dosage: UNK

REACTIONS (2)
  - Death [Fatal]
  - Oesophageal adenocarcinoma [Unknown]
